FAERS Safety Report 8473432-2 (Version None)
Quarter: 2012Q2

REPORT INFORMATION
  Report Type: 
  Country: None (occurrence: None)
  Receive Date: 20120628
  Receipt Date: 20120613
  Transmission Date: 20120825
  Serious: Yes (Death, Other)
  Sender: FDA-Public Use
  Company Number: TH-RANBAXY-2011RR-45896

PATIENT
  Age: 35 Year
  Sex: Female

DRUGS (1)
  1. METFORMIN HCL [Suspect]
     Indication: DIABETES MELLITUS
     Dosage: 1000 MG/DAY
     Route: 065

REACTIONS (2)
  - VASCULITIS [None]
  - PALPABLE PURPURA [None]
